FAERS Safety Report 11622531 (Version 1)
Quarter: 2015Q4

REPORT INFORMATION
  Report Type: Spontaneous
  Country: US (occurrence: None)
  Receive Date: 20151009
  Receipt Date: 20151009
  Transmission Date: 20160304
  Serious: Yes (Other)
  Sender: FDA-Public Use
  Company Number: None

PATIENT
  Age: 68 Year
  Sex: Male

DRUGS (1)
  1. TICAGRELOR [Suspect]
     Active Substance: TICAGRELOR
     Indication: STENT PLACEMENT
     Dates: start: 20150817, end: 20150817

REACTIONS (2)
  - Dyspnoea [None]
  - Angina pectoris [None]

NARRATIVE: CASE EVENT DATE: 20150817
